FAERS Safety Report 6817208-8 (Version None)
Quarter: 2010Q3

REPORT INFORMATION
  Report Type: 
  Country: None (occurrence: None)
  Receive Date: 20100706
  Receipt Date: 20100625
  Transmission Date: 20110219
  Serious: Yes (Other)
  Sender: FDA-Public Use
  Company Number: US-BAYER-201026401NA

PATIENT
  Sex: Female

DRUGS (2)
  1. YAZ [Suspect]
     Indication: ACNE
     Route: 048
     Dates: start: 20071219
  2. YASMIN [Suspect]
     Indication: ACNE
     Route: 048
     Dates: start: 20071219

REACTIONS (1)
  - PULMONARY EMBOLISM [None]
